APPROVED DRUG PRODUCT: QOLIANA
Active Ingredient: BRIMONIDINE TARTRATE
Strength: 0.15%
Dosage Form/Route: SOLUTION/DROPS;OPHTHALMIC
Application: N021764 | Product #001 | TE Code: AT
Applicant: SANDOZ INC
Approved: May 22, 2006 | RLD: Yes | RS: Yes | Type: RX